FAERS Safety Report 23258738 (Version 1)
Quarter: 2023Q4

REPORT INFORMATION
  Report Type: Spontaneous
  Country: US (occurrence: None)
  Receive Date: 20231202
  Receipt Date: 20231202
  Transmission Date: 20240109
  Serious: Yes (Disabling)
  Sender: FDA-Public Use
  Company Number: None

PATIENT
  Age: 70 Year
  Sex: Female
  Weight: 65.25 kg

DRUGS (11)
  1. OZEMPIC [Suspect]
     Active Substance: SEMAGLUTIDE
     Indication: Glycosylated haemoglobin increased
     Dosage: OTHER FREQUENCY : WEEKLY;?
     Route: 030
  2. TRAZODONE [Concomitant]
     Active Substance: TRAZODONE HYDROCHLORIDE
  3. METFORMIN [Concomitant]
     Active Substance: METFORMIN HYDROCHLORIDE
  4. BOTOX [Concomitant]
     Active Substance: ONABOTULINUMTOXINA
  5. ATORVASTATIN [Concomitant]
     Active Substance: ATORVASTATIN
  6. DIETARY SUPPLEMENT [Concomitant]
     Active Substance: DIETARY SUPPLEMENT
  7. VITAMINS [Concomitant]
     Active Substance: VITAMINS
  8. DIPHENHYDRAMINE [Concomitant]
     Active Substance: DIPHENHYDRAMINE
  9. MAGNESIUM [Concomitant]
     Active Substance: MAGNESIUM
  10. vit [Concomitant]
  11. STOOL SOFTENER (DOCUSATE) [Concomitant]
     Active Substance: DOCUSATE

REACTIONS (4)
  - Anal blister [None]
  - Anorectal discomfort [None]
  - Stomatitis [None]
  - Haemorrhoids [None]

NARRATIVE: CASE EVENT DATE: 20231015
